FAERS Safety Report 25545870 (Version 2)
Quarter: 2025Q3

REPORT INFORMATION
  Report Type: Spontaneous
  Country: US (occurrence: US)
  Receive Date: 20250712
  Receipt Date: 20250722
  Transmission Date: 20251021
  Serious: Yes (Hospitalization, Other)
  Sender: AUROBINDO
  Company Number: US-AUROBINDO-AUR-APL-2025-034945

PATIENT
  Age: 32 Year
  Sex: Male

DRUGS (3)
  1. CARIPRAZINE [Interacting]
     Active Substance: CARIPRAZINE
     Indication: COVID-19 pneumonia
     Dosage: 3 MILLIGRAM, ONCE A DAY
     Route: 065
  2. RISPERIDONE [Interacting]
     Active Substance: RISPERIDONE
     Indication: COVID-19 pneumonia
     Dosage: 1 MILLIGRAM, TWO TIMES A DAY
     Route: 065
  3. ACETAMINOPHEN [Concomitant]
     Active Substance: ACETAMINOPHEN
     Indication: Pyrexia
     Route: 054

REACTIONS (2)
  - Neuroleptic malignant syndrome [Recovered/Resolved]
  - Drug-disease interaction [Unknown]
